FAERS Safety Report 7082911-4 (Version None)
Quarter: 2010Q4

REPORT INFORMATION
  Report Type: 
  Country: None (occurrence: None)
  Receive Date: 20101104
  Receipt Date: 20101029
  Transmission Date: 20110411
  Serious: Yes (Life-Threatening, Other)
  Sender: FDA-Public Use
  Company Number: PHHY2010CH73218

PATIENT
  Age: 83 Year
  Sex: Female
  Weight: 73 kg

DRUGS (12)
  1. VOLTAREN [Suspect]
     Indication: BACK PAIN
     Dosage: 50 MG, TID
     Route: 048
     Dates: start: 20100630, end: 20100708
  2. COAPROVEL [Concomitant]
     Indication: ESSENTIAL HYPERTENSION
     Dosage: 300 MG
     Route: 048
     Dates: start: 20020101, end: 20100708
  3. ASPIRIN [Concomitant]
     Dosage: 100 MG
     Route: 048
  4. METOPROLOL SUCCINATE [Concomitant]
     Indication: ESSENTIAL HYPERTENSION
     Dosage: 100 MG
     Route: 048
  5. NORVASC [Concomitant]
     Indication: ESSENTIAL HYPERTENSION
     Dosage: 10 MG
     Route: 048
  6. HYGROTON [Concomitant]
     Indication: TYPE 2 DIABETES MELLITUS
     Dosage: 12.5 MG
     Route: 048
  7. ACTOS [Concomitant]
     Indication: TYPE 2 DIABETES MELLITUS
     Dosage: 30 MG
     Route: 048
  8. GLIMEPIRIDE [Concomitant]
     Indication: TYPE 2 DIABETES MELLITUS
     Dosage: 6 MG
  9. PANTOPRAZOLE SODIUM [Concomitant]
     Dosage: 20 MG
     Route: 048
  10. STEROIDS NOS [Concomitant]
     Indication: PAIN
  11. OXYCONTIN [Concomitant]
     Indication: PAIN
  12. LAXATIVES [Concomitant]
     Indication: PAIN

REACTIONS (9)
  - AREFLEXIA [None]
  - GENERAL PHYSICAL HEALTH DETERIORATION [None]
  - HEPATIC ENZYME INCREASED [None]
  - HEPATITIS [None]
  - HEPATOCELLULAR INJURY [None]
  - JAUNDICE [None]
  - LASEGUE'S TEST NEGATIVE [None]
  - MALAISE [None]
  - MUSCLE DISORDER [None]
